FAERS Safety Report 17439488 (Version 1)
Quarter: 2020Q1

REPORT INFORMATION
  Report Type: Spontaneous
  Country: NO (occurrence: NO)
  Receive Date: 20200220
  Receipt Date: 20200220
  Transmission Date: 20200409
  Serious: Yes (Hospitalization)
  Sender: FDA-Public Use
  Company Number: NO-ACCORD-173109

PATIENT
  Age: 0 Day
  Sex: Male

DRUGS (1)
  1. ESCITALOPRAM [Suspect]
     Active Substance: ESCITALOPRAM OXALATE
     Dosage: TRANSMAMMARY
     Route: 063

REACTIONS (6)
  - Irritability [Recovering/Resolving]
  - Muscle rigidity [Recovering/Resolving]
  - Opisthotonus [Recovering/Resolving]
  - Exposure via breast milk [Unknown]
  - Tremor [Recovering/Resolving]
  - Foetal exposure during pregnancy [Unknown]

NARRATIVE: CASE EVENT DATE: 2019
